FAERS Safety Report 9227078 (Version 1)
Quarter: 2013Q2

REPORT INFORMATION
  Report Type: Spontaneous
  Country: US (occurrence: None)
  Receive Date: 20130410
  Receipt Date: 20130410
  Transmission Date: 20140414
  Serious: Yes (Other)
  Sender: FDA-Public Use
  Company Number: None

PATIENT
  Age: 59 Year
  Sex: Female
  Weight: 69.85 kg

DRUGS (1)
  1. PROVIGIL (GENERIC) 200 MG [Suspect]
     Indication: HYPERSOMNIA
     Dosage: 200MG QID PO
     Route: 048
     Dates: start: 201212, end: 201302

REACTIONS (2)
  - Vomiting [None]
  - Rash [None]
